FAERS Safety Report 7901909-4 (Version None)
Quarter: 2011Q4

REPORT INFORMATION
  Report Type: 
  Country: None (occurrence: None)
  Receive Date: 20111108
  Receipt Date: 20111103
  Transmission Date: 20120403
  Serious: Yes (Life-Threatening, Hospitalization, Disabling)
  Sender: FDA-Public Use
  Company Number: DE-SANOFI-AVENTIS-2011SA072223

PATIENT
  Age: 70 Year
  Sex: Male

DRUGS (6)
  1. CANDESARTAN CILEXETIL [Concomitant]
     Dosage: DAILY DOSE: 32 MG MILLGRAM(S) EVERY DAYS
     Route: 048
  2. CLOPIDOGREL BISULFATE [Suspect]
     Indication: ACUTE CORONARY SYNDROME
     Dosage: DAILY DOSE: 75 MG MILLGRAM(S) EVERY DAYS
     Route: 048
     Dates: start: 20110222, end: 20110309
  3. ACETYLSALICYLIC ACID SRT [Concomitant]
     Indication: ACUTE CORONARY SYNDROME
     Route: 048
     Dates: start: 20110222
  4. TORSEMIDE [Concomitant]
     Route: 048
  5. AMLODIPINE [Concomitant]
     Dosage: DAILY DOSE: 20 MG MILLGRAM(S) EVERY DAYS
     Route: 048
  6. ISOPTIN [Concomitant]
     Indication: ARRHYTHMIA
     Route: 048

REACTIONS (8)
  - HAEMOLYTIC URAEMIC SYNDROME [None]
  - THROMBOCYTOPENIA [None]
  - RENAL FAILURE [None]
  - CONTINUOUS HAEMODIAFILTRATION [None]
  - HAEMOLYSIS [None]
  - NERVOUS SYSTEM DISORDER [None]
  - CARDIAC DISORDER [None]
  - MULTI-ORGAN FAILURE [None]
